FAERS Safety Report 22170982 (Version 2)
Quarter: 2023Q2

REPORT INFORMATION
  Report Type: Spontaneous
  Country: GB (occurrence: GB)
  Receive Date: 20230404
  Receipt Date: 20230412
  Transmission Date: 20230722
  Serious: Yes (Hospitalization, Other)
  Sender: FDA-Public Use
  Company Number: GB-Accord-306502

PATIENT
  Age: 30 Year
  Sex: Female

DRUGS (15)
  1. METHOTREXATE [Suspect]
     Active Substance: METHOTREXATE
     Indication: Choriocarcinoma
     Dosage: BEING GIVEN IN WEEK 1.?DOSE REDUCED FROM 1000 MG/M2 TO 800 MG/ M2
  2. ETOPOSIDE [Suspect]
     Active Substance: ETOPOSIDE
     Indication: Choriocarcinoma
     Dosage: ON DAY 1-2
  3. CYCLOPHOSPHAMIDE [Suspect]
     Active Substance: CYCLOPHOSPHAMIDE
     Indication: Choriocarcinoma
     Dosage: GIVEN IN WEEK 2
  4. VINCRISTINE [Suspect]
     Active Substance: VINCRISTINE
     Indication: Choriocarcinoma
     Dosage: GIVEN IN WEEK 2
  5. ACTINOMYCIN D [Suspect]
     Active Substance: DACTINOMYCIN
     Indication: Choriocarcinoma
     Dosage: ON DAY 1-2
  6. ETOPOSIDE [Suspect]
     Active Substance: ETOPOSIDE
     Indication: Metastases to meninges
     Dosage: DAY 1-2
  7. METHOTREXATE [Suspect]
     Active Substance: METHOTREXATE
     Indication: Metastases to lung
     Dosage: BEING GIVEN IN WEEK 1.?DOSE REDUCED FROM 1000 MG/M2 TO 800 MG/ M2
  8. METHOTREXATE [Suspect]
     Active Substance: METHOTREXATE
     Indication: Metastases to meninges
     Dosage: BEING GIVEN IN WEEK 1.?DOSE REDUCED FROM 1000 MG/M2 TO 800 MG/ M2
  9. VINCRISTINE [Suspect]
     Active Substance: VINCRISTINE
     Indication: Metastases to meninges
     Dosage: IN WEEK 2
  10. ACTINOMYCIN D [Suspect]
     Active Substance: DACTINOMYCIN
     Indication: Metastases to meninges
     Dosage: DAY 1-2
  11. ETOPOSIDE [Suspect]
     Active Substance: ETOPOSIDE
     Indication: Metastases to lung
     Dosage: DAY 1-2
  12. CYCLOPHOSPHAMIDE [Suspect]
     Active Substance: CYCLOPHOSPHAMIDE
     Indication: Metastases to lung
  13. VINCRISTINE [Suspect]
     Active Substance: VINCRISTINE
     Indication: Metastases to lung
     Dosage: IN WEEK 2
  14. ACTINOMYCIN D [Suspect]
     Active Substance: DACTINOMYCIN
     Indication: Metastases to lung
     Dosage: DAY 1-2
  15. CYCLOPHOSPHAMIDE [Suspect]
     Active Substance: CYCLOPHOSPHAMIDE
     Indication: Metastases to meninges

REACTIONS (2)
  - Mucosal inflammation [Unknown]
  - Off label use [Unknown]
